FAERS Safety Report 6423694-8 (Version None)
Quarter: 2009Q4

REPORT INFORMATION
  Report Type: 
  Country: None (occurrence: None)
  Receive Date: 20091102
  Receipt Date: 20091020
  Transmission Date: 20100525
  Serious: Yes (Disabling, Other)
  Sender: FDA-Public Use
  Company Number: AT-PFIZER INC-2009235217

PATIENT
  Age: 50 Year

DRUGS (5)
  1. SUTENT [Suspect]
     Indication: METASTATIC RENAL CELL CARCINOMA
     Dosage: 50 MG, CYCLIC
     Route: 048
     Dates: start: 20070601
  2. SUTENT [Suspect]
     Dosage: 37.5 MG, CYCLIC
     Route: 048
     Dates: start: 20080501
  3. ENALAPRIL [Concomitant]
     Indication: HYPERTENSION
     Dosage: 5 MG, 1X/DAY
     Route: 048
     Dates: start: 19850101
  4. ALLOSTAD [Concomitant]
     Indication: HYPERURICAEMIA
     Dosage: 300 MG, 1X/DAY
     Route: 048
     Dates: start: 19800101
  5. CIALIS [Concomitant]
     Dosage: UNK
     Route: 048

REACTIONS (1)
  - BONE PAIN [None]
